FAERS Safety Report 4692646-0 (Version None)
Quarter: 2005Q2

REPORT INFORMATION
  Report Type: 
  Country: None (occurrence: None)
  Receive Date: 20050617
  Receipt Date: 20050309
  Transmission Date: 20051028
  Serious: Yes (Hospitalization, Disabling)
  Sender: FDA-Public Use
  Company Number: US-MERCK-0503USA02128

PATIENT
  Age: 54 Year
  Sex: Female
  Weight: 182 kg

DRUGS (5)
  1. VIOXX [Suspect]
     Route: 048
     Dates: start: 20010101, end: 20010601
  2. ATENOLOL [Concomitant]
     Indication: HYPERTENSION
     Route: 065
  3. LASIX [Concomitant]
     Indication: OEDEMA
     Route: 065
  4. COUMADIN [Concomitant]
     Indication: THROMBOSIS
     Route: 065
  5. TIMOPTIC [Concomitant]
     Indication: EYE DISORDER
     Route: 065

REACTIONS (3)
  - GASTRIC DISORDER [None]
  - PULMONARY EMBOLISM [None]
  - THROMBOSIS [None]
